FAERS Safety Report 5016826-X (Version None)
Quarter: 2006Q2

REPORT INFORMATION
  Report Type: 
  Country: None (occurrence: None)
  Receive Date: 20060526
  Receipt Date: 20060515
  Transmission Date: 20061013
  Serious: Yes (Hospitalization)
  Sender: FDA-Public Use
  Company Number: JP200605003466

PATIENT
  Age: 83 Year
  Sex: Female

DRUGS (6)
  1. RALOXIFENE HCL [Suspect]
     Indication: OSTEOPOROSIS POSTMENOPAUSAL
     Dosage: 60 MG, DAILY (1/D), ORAL
     Route: 048
     Dates: start: 20050523, end: 20051121
  2. MOBIC [Concomitant]
  3. NORVASC [Concomitant]
  4. URSO (UROSEOXYCHOLIC ACID) [Concomitant]
  5. DEPAS (ETIZOLAM) [Concomitant]
  6. CETAPRIL (ALACEPRIL) [Concomitant]

REACTIONS (1)
  - CEREBRAL INFARCTION [None]
